FAERS Safety Report 9205567 (Version 2)
Quarter: 2013Q3

REPORT INFORMATION
  Report Type: Spontaneous
  Country: US (occurrence: US)
  Receive Date: 20130403
  Receipt Date: 20130917
  Transmission Date: 20140515
  Serious: No
  Sender: FDA-Public Use
  Company Number: US-BIOGENIDEC-2013BI027897

PATIENT
  Age: 41 Year
  Sex: Male

DRUGS (1)
  1. TYSABRI [Suspect]
     Indication: MULTIPLE SCLEROSIS
     Route: 042
     Dates: start: 20110923, end: 20130712

REACTIONS (4)
  - Fall [Recovered/Resolved]
  - Stress [Not Recovered/Not Resolved]
  - Cognitive disorder [Unknown]
  - Gait disturbance [Unknown]
